FAERS Safety Report 17912866 (Version 12)
Quarter: 2024Q1

REPORT INFORMATION
  Report Type: Other
  Country: CN (occurrence: None)
  Receive Date: 20200618
  Receipt Date: 20240119
  Transmission Date: 20240410
  Serious: Yes (Other)
  Sender: FDA-Public Use
  Company Number: CN-ROCHE-2625735

PATIENT
  Age: 62 Year
  Sex: Female
  Weight: 47 kg

DRUGS (4)
  1. AVASTIN [Suspect]
     Active Substance: BEVACIZUMAB
     Indication: Colon cancer
     Dosage: 100MG
     Route: 041
     Dates: start: 20160914
  2. AVASTIN [Suspect]
     Active Substance: BEVACIZUMAB
     Dosage: 100MG
     Route: 041
     Dates: start: 20170815, end: 20200519
  3. AVASTIN [Suspect]
     Active Substance: BEVACIZUMAB
     Dosage: 100MG
     Route: 041
     Dates: start: 20200814, end: 20200818
  4. AVASTIN [Suspect]
     Active Substance: BEVACIZUMAB
     Dosage: 100 MG
     Route: 041

REACTIONS (8)
  - Lung neoplasm [Not Recovered/Not Resolved]
  - Lung disorder [Unknown]
  - Haemorrhoids [Unknown]
  - SARS-CoV-2 test positive [Unknown]
  - Lung disorder [Not Recovered/Not Resolved]
  - Nodule [Not Recovered/Not Resolved]
  - Pulmonary fibrosis [Not Recovered/Not Resolved]
  - Hilar lymphadenopathy [Not Recovered/Not Resolved]

NARRATIVE: CASE EVENT DATE: 20230223
